FAERS Safety Report 9482472 (Version 2)
Quarter: 2013Q3

REPORT INFORMATION
  Report Type: Spontaneous
  Country: JP (occurrence: JP)
  Receive Date: 20130828
  Receipt Date: 20130828
  Transmission Date: 20140515
  Serious: Yes (Death, Hospitalization)
  Sender: FDA-Public Use
  Company Number: JP-EISAI INC-E7389-03997-SPO-JP

PATIENT
  Age: 52 Year
  Sex: Female

DRUGS (2)
  1. HALAVEN [Suspect]
     Indication: BREAST CANCER
     Route: 041
     Dates: start: 201301, end: 201306
  2. ZOMETA [Concomitant]
     Indication: BREAST CANCER
     Route: 041
     Dates: start: 20130523

REACTIONS (3)
  - Hepatic failure [Fatal]
  - Asthenia [Not Recovered/Not Resolved]
  - Neuropathy peripheral [Not Recovered/Not Resolved]
